FAERS Safety Report 18479895 (Version 1)
Quarter: 2020Q4

REPORT INFORMATION
  Report Type: Spontaneous
  Country: US (occurrence: US)
  Receive Date: 20201109
  Receipt Date: 20201109
  Transmission Date: 20210114
  Serious: Yes (Hospitalization)
  Sender: FDA-Public Use
  Company Number: US-PROCTER+GAMBLE-GS20124868

PATIENT
  Age: 34 Year
  Sex: Male

DRUGS (3)
  1. VICKS NYQUIL COLD + FLU RELIEF LIQUICAPS (DEXTROMETHORPHAN HYDROBROMIDE\PARACETAMOL\PHENYLEPHRINE HYDROCHLORIDE) [Suspect]
     Active Substance: ACETAMINOPHEN\DEXTROMETHORPHAN HYDROBROMIDE\PHENYLEPHRINE HYDROCHLORIDE
     Indication: NASAL CONGESTION
     Dosage: UNK
     Route: 048
  2. VICKS DAYQUIL COLD AND FLU MULTI-SYMPTOM RELIEF [Suspect]
     Active Substance: ACETAMINOPHEN\DEXTROMETHORPHAN HYDROBROMIDE\PHENYLEPHRINE HYDROCHLORIDE
     Indication: NASOPHARYNGITIS
  3. TOBACCO [Suspect]
     Active Substance: TOBACCO LEAF
     Route: 048

REACTIONS (11)
  - Colitis ischaemic [Recovered/Resolved]
  - Abdominal pain lower [Recovered/Resolved]
  - Haematochezia [Recovered/Resolved]
  - Diarrhoea [Recovered/Resolved]
  - White blood cell count increased [Recovered/Resolved]
  - Leukocytosis [Recovered/Resolved]
  - Abdominal distension [Recovered/Resolved]
  - Abdominal tenderness [Recovered/Resolved]
  - Endoscopy large bowel abnormal [Recovered/Resolved]
  - Computerised tomogram abdomen abnormal [Recovered/Resolved]
  - Computerised tomogram pelvis abnormal [Recovered/Resolved]

NARRATIVE: CASE EVENT DATE: 2019
